FAERS Safety Report 15804451 (Version 2)
Quarter: 2019Q1

REPORT INFORMATION
  Report Type: Report from Study
  Country: AT (occurrence: AT)
  Receive Date: 20190109
  Receipt Date: 20190201
  Transmission Date: 20190417
  Serious: Yes (Life-Threatening, Hospitalization)
  Sender: FDA-Public Use
  Company Number: AT-PFIZER INC-2018503399

PATIENT
  Age: 73 Year
  Sex: Female
  Weight: 52 kg

DRUGS (22)
  1. LAXOGOL [Concomitant]
     Dosage: 3 DF, 1X/DAY (3-0-0-0)
     Route: 048
  2. PANTOLOC [PANTOPRAZOLE] [Concomitant]
     Active Substance: PANTOPRAZOLE SODIUM
     Dosage: 40 MG, 1X/DAY (1-0-0-0)
     Route: 048
  3. LORLATINIB [Suspect]
     Active Substance: LORLATINIB
     Indication: ADENOCARCINOMA
     Dosage: 100 MG, 1X/DAY (4X25 IN THE MORNING)
     Route: 048
     Dates: start: 201812, end: 20181205
  4. SORTIS [Concomitant]
     Active Substance: ATORVASTATIN
     Dosage: 10 MG, 1X/DAY (0-0-1-0)
  5. THROMBO ASS [Concomitant]
     Active Substance: ASPIRIN
     Dosage: 100 MG, 1X/DAY (0-1-0-0)
  6. SPIRIVA RESPIMAT [Concomitant]
     Active Substance: TIOTROPIUM BROMIDE
     Dosage: 5 UG, UNK
  7. ALENDRONIC ACID [Concomitant]
     Active Substance: ALENDRONIC ACID
     Dosage: 40 MG, WEEKLY (SUNDAY)
     Route: 048
  8. MAXI-KALZ [Concomitant]
     Dosage: 500 MG, 1X/DAY (1-0-0-0)
     Route: 048
  9. CONCOR [Concomitant]
     Active Substance: BISOPROLOL FUMARATE
     Dosage: 2.5 MG, 2X/DAY (2.5-0-2.5-0)
     Route: 048
  10. BERODUAL METERED-DOSE INHALER [Concomitant]
     Dosage: 2 DF, AS NEEDED
  11. FOLSAN [Concomitant]
     Active Substance: FOLIC ACID
     Dosage: 5 MG, 1X/DAY (1-0-0-0)
     Route: 048
  12. THIAMAZOL SANDOZ [Concomitant]
     Dosage: 5 MG, 1X/DAY (1-0-0-0)
  13. OLEOVIT D3 [Concomitant]
     Active Substance: CHOLECALCIFEROL
     Dosage: 40 GTT, WEEKLY (SUNDAY)
     Route: 048
  14. NEUROMULTIVIT [Concomitant]
     Active Substance: CYANOCOBALAMIN\PYRIDOXINE\THIAMINE
     Dosage: 1 DF, 2X/DAY (1-0-1-0)
     Route: 048
  15. SPIRONO GEL [Concomitant]
     Dosage: 25 MG, 1X/DAY (25MG-0-0-0)
  16. LASIX [Concomitant]
     Active Substance: FUROSEMIDE
     Dosage: 60 MG, DAILY (40MG -20MG -0-0)
     Route: 048
  17. NOVALGIN (METAMIZOLE SODIUM) [Concomitant]
     Active Substance: METAMIZOLE SODIUM
     Dosage: 1 DF, 4X/DAY (1-1-1-1)
     Route: 048
  18. TERBINAFIN [Concomitant]
     Active Substance: TERBINAFINE
     Dosage: 2X DAILY FOR 2 MONTHS
  19. LORLATINIB [Suspect]
     Active Substance: LORLATINIB
     Dosage: 100 MG (4X25 IN THE MORNING) (DOSE OF 4-0-0)
     Route: 048
     Dates: start: 20181214, end: 20181218
  20. TARDYFERON [Concomitant]
     Active Substance: FERROUS SULFATE
     Dosage: 80 MG, 1X/DAY (1-0-0-0)
     Route: 048
  21. FOSTERNEXT HALER [Concomitant]
     Dosage: 100/6UG, 2 DF, 2X/DAY (2-0-2-0)
  22. LIXIANA [Concomitant]
     Active Substance: EDOXABAN TOSYLATE
     Dosage: 60 MG, 1X/DAY (1-0-0-0)
     Route: 048

REACTIONS (3)
  - Metabolic acidosis [Recovered/Resolved]
  - Hypercapnia [Recovered/Resolved]
  - Respiratory failure [Recovered/Resolved]

NARRATIVE: CASE EVENT DATE: 20181205
